FAERS Safety Report 7093154-2 (Version None)
Quarter: 2010Q4

REPORT INFORMATION
  Report Type: 
  Country: None (occurrence: None)
  Receive Date: 20101110
  Receipt Date: 20090310
  Transmission Date: 20110411
  Serious: Yes (Other)
  Sender: FDA-Public Use
  Company Number: US-KINGPHARMUSA00001-K200900263

PATIENT
  Sex: Female

DRUGS (1)
  1. CORGARD [Suspect]
     Dosage: 80 MG, QD
     Route: 048
     Dates: start: 20080601

REACTIONS (3)
  - CHILLBLAINS [None]
  - HEART RATE DECREASED [None]
  - RIGHT VENTRICULAR FAILURE [None]
